FAERS Safety Report 24003729 (Version 1)
Quarter: 2024Q2

REPORT INFORMATION
  Report Type: Spontaneous
  Country: US (occurrence: US)
  Receive Date: 20240624
  Receipt Date: 20240624
  Transmission Date: 20240715
  Serious: Yes (Other)
  Sender: FDA-Public Use
  Company Number: US-BRISTOL-MYERS SQUIBB COMPANY-2024-098209

PATIENT
  Age: 63 Year
  Sex: Female

DRUGS (1)
  1. INREBIC [Suspect]
     Active Substance: FEDRATINIB HYDROCHLORIDE
     Indication: Product used for unknown indication
     Dosage: DOSE : TAKE 4 CAPSULES;     FREQ : DAILY WITH HIGH FAT MEAL TO REDUCE NAUSEA AND VOMITING
     Route: 048

REACTIONS (3)
  - Diabetes mellitus [Unknown]
  - Atrial fibrillation [Unknown]
  - Renal disorder [Unknown]

NARRATIVE: CASE EVENT DATE: 20231101
